FAERS Safety Report 14228067 (Version 2)
Quarter: 2017Q4

REPORT INFORMATION
  Report Type: Spontaneous
  Country: US (occurrence: US)
  Receive Date: 20171127
  Receipt Date: 20171214
  Transmission Date: 20180321
  Serious: No
  Sender: FDA-Public Use
  Company Number: US-009507513-1711USA010343

PATIENT
  Age: 49 Year
  Sex: Female

DRUGS (7)
  1. PRAMIPEXOLE. [Concomitant]
     Active Substance: PRAMIPEXOLE
  2. SINEMET [Suspect]
     Active Substance: CARBIDOPA\LEVODOPA
     Dosage: UNK
     Route: 048
  3. SINEMET [Suspect]
     Active Substance: CARBIDOPA\LEVODOPA
     Indication: PARKINSON^S DISEASE
     Dosage: 300 MG/DAY
     Route: 048
  4. QUETIAPINE FUMARATE. [Concomitant]
     Active Substance: QUETIAPINE FUMARATE
  5. AMANTADINE. [Concomitant]
     Active Substance: AMANTADINE HYDROCHLORIDE
  6. VENLAFAXINE HYDROCHLORIDE. [Concomitant]
     Active Substance: VENLAFAXINE HYDROCHLORIDE
  7. SINEMET [Suspect]
     Active Substance: CARBIDOPA\LEVODOPA
     Dosage: 400 MG/DAY
     Route: 048

REACTIONS (1)
  - Impulse-control disorder [Recovered/Resolved]
